FAERS Safety Report 8446560-5 (Version None)
Quarter: 2012Q2

REPORT INFORMATION
  Report Type: 
  Country: None (occurrence: None)
  Receive Date: 20120618
  Receipt Date: 20120423
  Transmission Date: 20120825
  Serious: Yes (Other)
  Sender: FDA-Public Use
  Company Number: PHHY2012KR000598

PATIENT
  Sex: Female
  Weight: 49 kg

DRUGS (2)
  1. EXJADE [Suspect]
     Indication: APLASTIC ANAEMIA
     Dosage: 20 MG/KG
     Route: 048
     Dates: start: 20080327
  2. HORMONES NOS [Concomitant]

REACTIONS (3)
  - PAIN [None]
  - OSTEOPOROSIS [None]
  - GENERAL PHYSICAL HEALTH DETERIORATION [None]
